FAERS Safety Report 7590172-2 (Version None)
Quarter: 2011Q3

REPORT INFORMATION
  Report Type: 
  Country: None (occurrence: None)
  Receive Date: 20110705
  Receipt Date: 20110621
  Transmission Date: 20111222
  Serious: Yes (Hospitalization, Other)
  Sender: FDA-Public Use
  Company Number: BE-WATSON-2011-07331

PATIENT
  Age: 80 Year
  Sex: Male

DRUGS (2)
  1. LITHIUM CARBONATE [Suspect]
     Indication: BIPOLAR DISORDER
     Dosage: 250 MG, TID
  2. FUROSEMIDE [Suspect]
     Indication: PRODUCT USED FOR UNKNOWN INDICATION
     Dosage: 40 MG, DAILY

REACTIONS (6)
  - NEPHROGENIC DIABETES INSIPIDUS [None]
  - DRUG INTERACTION [None]
  - DEHYDRATION [None]
  - GASTROENTERITIS [None]
  - RENAL FAILURE [None]
  - TOXICITY TO VARIOUS AGENTS [None]
